FAERS Safety Report 7095583-X (Version None)
Quarter: 2010Q4

REPORT INFORMATION
  Report Type: 
  Country: None (occurrence: None)
  Receive Date: 20101111
  Receipt Date: 20101028
  Transmission Date: 20110411
  Serious: Yes (Other)
  Sender: FDA-Public Use
  Company Number: US-SHIONOGI USA, INC-2010000065

PATIENT
  Sex: Male

DRUGS (1)
  1. EPINEPHRINE [Suspect]
     Indication: FOOD ALLERGY
     Dosage: 0.3 MG, PRN
     Route: 030
     Dates: start: 20101021, end: 20101021

REACTIONS (3)
  - DEVICE MALFUNCTION [None]
  - NEEDLE ISSUE [None]
  - PRODUCT QUALITY ISSUE [None]
